FAERS Safety Report 26067866 (Version 1)
Quarter: 2025Q4

REPORT INFORMATION
  Report Type: Spontaneous
  Country: AR (occurrence: AR)
  Receive Date: 20251120
  Receipt Date: 20251120
  Transmission Date: 20260117
  Serious: Yes (Other)
  Sender: CELLTRION
  Company Number: AR-CELLTRION INC.-2025AR041777

PATIENT

DRUGS (5)
  1. RITUXIMAB [Suspect]
     Active Substance: RITUXIMAB
     Indication: Anti-HLA antibody test positive
     Dosage: UNK
  2. RITUXIMAB [Suspect]
     Active Substance: RITUXIMAB
     Indication: Immunosuppression
  3. HUMAN IMMUNOGLOBULIN G [Suspect]
     Active Substance: HUMAN IMMUNOGLOBULIN G
     Indication: Anti-HLA antibody test positive
     Dosage: UNK
  4. HUMAN IMMUNOGLOBULIN G [Suspect]
     Active Substance: HUMAN IMMUNOGLOBULIN G
     Indication: Immunosuppression
  5. HUMAN IMMUNOGLOBULIN G [Concomitant]
     Active Substance: HUMAN IMMUNOGLOBULIN G
     Dosage: UNK

REACTIONS (9)
  - Upper gastrointestinal haemorrhage [Unknown]
  - Lower gastrointestinal haemorrhage [Unknown]
  - Skin mass [Unknown]
  - Faecal calprotectin increased [Unknown]
  - Enteritis [Unknown]
  - Pyrexia [Unknown]
  - Blood immunoglobulin M decreased [Unknown]
  - Product use in unapproved indication [Unknown]
  - Therapy non-responder [Unknown]
